FAERS Safety Report 18169224 (Version 1)
Quarter: 2020Q3

REPORT INFORMATION
  Report Type: Spontaneous
  Country: IN (occurrence: IN)
  Receive Date: 20200819
  Receipt Date: 20200819
  Transmission Date: 20201103
  Serious: Yes (Hospitalization)
  Sender: FDA-Public Use
  Company Number: IN-CELLTRION-2020-IN-000114

PATIENT
  Age: 51 Year
  Sex: Male

DRUGS (6)
  1. ETHIONAMIDE [Concomitant]
     Active Substance: ETHIONAMIDE
     Dosage: 1 GM DAILY
  2. CYCLOSERINE. [Concomitant]
     Active Substance: CYCLOSERINE
     Dosage: 500 MG DAILY
  3. LEVOFLOXACIN (NON?SPECIFIC) [Suspect]
     Active Substance: LEVOFLOXACIN
     Indication: TUBERCULOSIS
     Dosage: 1 GM DAILY
  4. PANTOPRAZOLE [Concomitant]
     Active Substance: PANTOPRAZOLE
     Dosage: 40 MG DAILY
  5. ETHAMBUTOL [Concomitant]
     Active Substance: ETHAMBUTOL HYDROCHLORIDE
     Dosage: 1.2 G DAILY
  6. PYRIDOXINE [Concomitant]
     Active Substance: PYRIDOXINE
     Dosage: 20 MG DAILY

REACTIONS (3)
  - Myoclonus [Recovered/Resolved]
  - Encephalopathy [Recovered/Resolved]
  - Neurotoxicity [Unknown]
